FAERS Safety Report 12195213 (Version 1)
Quarter: 2016Q1

REPORT INFORMATION
  Report Type: Spontaneous
  Country: US (occurrence: None)
  Receive Date: 20160318
  Receipt Date: 20160318
  Transmission Date: 20160526
  Serious: Yes (Hospitalization)
  Sender: FDA-Public Use
  Company Number: None

PATIENT
  Age: 62 Year
  Sex: Female
  Weight: 135.17 kg

DRUGS (2)
  1. FARXIGA [Suspect]
     Active Substance: DAPAGLIFLOZIN PROPANEDIOL
     Indication: DIABETES MELLITUS
     Dates: start: 20160204, end: 20160304
  2. FARXIGA [Suspect]
     Active Substance: DAPAGLIFLOZIN PROPANEDIOL
     Indication: WEIGHT INCREASED
     Dates: start: 20160204, end: 20160304

REACTIONS (5)
  - Rhabdomyolysis [None]
  - Impaired self-care [None]
  - Muscular weakness [None]
  - Fatigue [None]
  - Urinary tract infection [None]

NARRATIVE: CASE EVENT DATE: 20160308
